FAERS Safety Report 18597150 (Version 1)
Quarter: 2020Q4

REPORT INFORMATION
  Report Type: Spontaneous
  Country: US (occurrence: US)
  Receive Date: 20201209
  Receipt Date: 20201209
  Transmission Date: 20210114
  Serious: Yes (Other)
  Sender: FDA-Public Use
  Company Number: US-JNJFOC-20201210175

PATIENT
  Age: 4 Decade
  Sex: Male

DRUGS (1)
  1. TOPIRAMATE. [Suspect]
     Active Substance: TOPIRAMATE
     Indication: BIPOLAR DISORDER
     Route: 065
     Dates: end: 2019

REACTIONS (3)
  - Off label use [Unknown]
  - Nephrolithiasis [Unknown]
  - Product use in unapproved indication [Unknown]
